FAERS Safety Report 4315064-3 (Version None)
Quarter: 2004Q1

REPORT INFORMATION
  Report Type: 
  Country: None (occurrence: None)
  Receive Date: 20040309
  Receipt Date: 20040220
  Transmission Date: 20041129
  Serious: Yes (Other)
  Sender: FDA-Public Use
  Company Number: JP_030901819

PATIENT
  Age: 72 Year
  Sex: Male
  Weight: 49 kg

DRUGS (1)
  1. GEMZAR [Suspect]
     Indication: PANCREATIC CARCINOMA
     Dosage: 1400 MG/OTHER
     Route: 050
     Dates: start: 20021106, end: 20030714

REACTIONS (1)
  - CHOLANGITIS [None]
